FAERS Safety Report 6728009-3 (Version None)
Quarter: 2010Q2

REPORT INFORMATION
  Report Type: 
  Country: None (occurrence: None)
  Receive Date: 20100517
  Receipt Date: 20100126
  Transmission Date: 20101027
  Serious: Yes (Death)
  Sender: FDA-Public Use
  Company Number: JP-BAYER-200810785BYL

PATIENT
  Age: 63 Year
  Sex: Female
  Weight: 62 kg

DRUGS (11)
  1. NEXAVAR [Suspect]
     Indication: RENAL CELL CARCINOMA
     Dosage: TOTAL DAILY DOSE: 800 MG
     Route: 048
     Dates: start: 20080319, end: 20080401
  2. NEXAVAR [Suspect]
     Dosage: TOTAL DAILY DOSE: 400 MG
     Route: 048
     Dates: start: 20080414, end: 20080429
  3. NEXAVAR [Suspect]
     Dosage: TOTAL DAILY DOSE: 400 MG
     Route: 048
     Dates: start: 20080412, end: 20080412
  4. NEXAVAR [Suspect]
     Dosage: TOTAL DAILY DOSE: 400 MG
     Route: 048
     Dates: start: 20080409, end: 20080410
  5. UFT [Concomitant]
     Indication: CHEMOTHERAPY
     Route: 048
  6. ALLEGRA [Concomitant]
     Route: 048
     Dates: start: 20080416, end: 20080430
  7. HYPEN [Concomitant]
     Indication: BACK PAIN
     Route: 048
     Dates: start: 20080423, end: 20080430
  8. NAUZELIN [Concomitant]
     Route: 048
     Dates: start: 20080423, end: 20080430
  9. LENDORMIN D [Concomitant]
     Indication: INSOMNIA
     Dosage: TOTAL DAILY DOSE: 1 DF
     Route: 048
     Dates: start: 20080411, end: 20080430
  10. ROPION [Concomitant]
     Route: 042
     Dates: start: 20080510, end: 20080511
  11. ROPION [Concomitant]
     Route: 042
     Dates: start: 20080512, end: 20080512

REACTIONS (5)
  - ANAEMIA [None]
  - C-REACTIVE PROTEIN INCREASED [None]
  - ERYTHEMA [None]
  - LIVER DISORDER [None]
  - RASH [None]
